FAERS Safety Report 23062747 (Version 1)
Quarter: 2023Q4

REPORT INFORMATION
  Report Type: Spontaneous
  Country: US (occurrence: US)
  Receive Date: 20231013
  Receipt Date: 20231013
  Transmission Date: 20240110
  Serious: Yes (Hospitalization)
  Sender: FDA-Public Use
  Company Number: US-MYLANLABS-2023M1106624

PATIENT
  Age: 41 Year
  Sex: Male

DRUGS (2)
  1. NALOXONE [Suspect]
     Active Substance: NALOXONE
     Indication: Product used for unknown indication
     Dosage: 2 MILLIGRAM
     Route: 030
  2. FENTANYL [Suspect]
     Active Substance: FENTANYL
     Indication: Product used for unknown indication
     Dosage: UNK
     Route: 055

REACTIONS (7)
  - Pulmonary alveolar haemorrhage [Recovering/Resolving]
  - Hypoxia [Recovering/Resolving]
  - Haemoptysis [Recovering/Resolving]
  - Tachycardia [Unknown]
  - Tachypnoea [Recovering/Resolving]
  - Leukocytosis [Unknown]
  - Respiratory failure [Recovering/Resolving]
